FAERS Safety Report 5374649-6 (Version None)
Quarter: 2007Q2

REPORT INFORMATION
  Report Type: 
  Country: None (occurrence: None)
  Receive Date: 20070627
  Receipt Date: 20070627
  Transmission Date: 20071010
  Serious: No
  Sender: FDA-Public Use
  Company Number: None

PATIENT
  Age: 61 Year
  Sex: Male

DRUGS (1)
  1. FLUNISOLIDE [Suspect]
     Indication: RHINITIS ALLERGIC
     Dosage: 1PUFF(S)  BID  NASAL
     Route: 045
     Dates: start: 20070607, end: 20070615

REACTIONS (3)
  - NASAL CONGESTION [None]
  - NASAL DISCOMFORT [None]
  - SNORING [None]
